FAERS Safety Report 9360928 (Version 3)
Quarter: 2013Q3

REPORT INFORMATION
  Report Type: Report from Study
  Country: US (occurrence: US)
  Receive Date: 20130621
  Receipt Date: 20130926
  Transmission Date: 20140515
  Serious: Yes (Other)
  Sender: FDA-Public Use
  Company Number: US-FRI-1000045978

PATIENT
  Age: 57 Year
  Sex: Male
  Weight: 69.82 kg

DRUGS (3)
  1. SYMBICORT [Concomitant]
     Dosage: 320/9
     Route: 055
     Dates: start: 20120518
  2. VENTOLIN [Concomitant]
     Route: 055
     Dates: start: 20120518
  3. ROFLUMILAST [Suspect]
     Indication: CHRONIC OBSTRUCTIVE PULMONARY DISEASE
     Dosage: 500 MCG
     Route: 048
     Dates: start: 20120906, end: 20130903

REACTIONS (1)
  - Myalgia [Not Recovered/Not Resolved]
